FAERS Safety Report 13311374 (Version 2)
Quarter: 2017Q4

REPORT INFORMATION
  Report Type: Spontaneous
  Country: US (occurrence: US)
  Receive Date: 20170309
  Receipt Date: 20171123
  Transmission Date: 20180320
  Serious: No
  Sender: FDA-Public Use
  Company Number: US-JNJFOC-20170300169

PATIENT
  Sex: Male

DRUGS (36)
  1. RISPERDAL [Suspect]
     Active Substance: RISPERIDONE
     Indication: POST-TRAUMATIC STRESS DISORDER
     Route: 048
     Dates: start: 20010601
  2. RISPERDAL [Suspect]
     Active Substance: RISPERIDONE
     Indication: ATTENTION DEFICIT/HYPERACTIVITY DISORDER
     Route: 048
     Dates: start: 20010601
  3. RISPERDAL [Suspect]
     Active Substance: RISPERIDONE
     Indication: ATTENTION DEFICIT/HYPERACTIVITY DISORDER
     Dosage: VARYING DOSES OF 0.5 AND 01 MG IN VARYING FREQUENCIES
     Route: 048
     Dates: start: 20001208, end: 20001216
  4. RISPERDAL [Suspect]
     Active Substance: RISPERIDONE
     Indication: ATTENTION DEFICIT/HYPERACTIVITY DISORDER
     Dosage: VARYING DOSES OF 0.5, 01, 02 AND 04 MG
     Route: 048
     Dates: start: 20031118, end: 20060202
  5. RISPERDAL [Suspect]
     Active Substance: RISPERIDONE
     Indication: AUTISM SPECTRUM DISORDER
     Dosage: TWICE DAILY AND UNSPECIFIED FREQUENCY
     Route: 048
     Dates: start: 20081208, end: 20081210
  6. RISPERDAL [Suspect]
     Active Substance: RISPERIDONE
     Indication: CONDUCT DISORDER
     Dosage: TWICE DAILY AND UNSPECIFIED FREQUENCY
     Route: 048
     Dates: start: 20081208, end: 20081210
  7. RISPERDAL [Suspect]
     Active Substance: RISPERIDONE
     Indication: CONDUCT DISORDER
     Route: 048
     Dates: start: 20010601
  8. RISPERDAL [Suspect]
     Active Substance: RISPERIDONE
     Indication: OPPOSITIONAL DEFIANT DISORDER
     Route: 048
     Dates: start: 20010601
  9. RISPERDAL [Suspect]
     Active Substance: RISPERIDONE
     Indication: ATTENTION DEFICIT/HYPERACTIVITY DISORDER
     Dosage: TWICE DAILY AND UNSPECIFIED FREQUENCY
     Route: 048
     Dates: start: 20081208, end: 20081210
  10. RISPERIDONE. [Suspect]
     Active Substance: RISPERIDONE
     Indication: PRODUCT USED FOR UNKNOWN INDICATION
     Route: 048
     Dates: start: 20010601
  11. RISPERDAL [Suspect]
     Active Substance: RISPERIDONE
     Indication: AFFECTIVE DISORDER
     Dosage: VARYING DOSES OF 0.5 AND 01 MG IN VARYING FREQUENCIES
     Route: 048
     Dates: start: 20001208, end: 20001216
  12. RISPERDAL [Suspect]
     Active Substance: RISPERIDONE
     Indication: POST-TRAUMATIC STRESS DISORDER
     Dosage: VARYING DOSES OF 0.5 AND 01 MG IN VARYING FREQUENCIES
     Route: 048
     Dates: start: 20001208, end: 20001216
  13. RISPERDAL [Suspect]
     Active Substance: RISPERIDONE
     Indication: OPPOSITIONAL DEFIANT DISORDER
     Dosage: VARYING DOSES OF 0.5 AND 01 MG IN VARYING FREQUENCIES
     Route: 048
     Dates: start: 20020815
  14. RISPERDAL [Suspect]
     Active Substance: RISPERIDONE
     Indication: OPPOSITIONAL DEFIANT DISORDER
     Dosage: VARYING DOSES OF 0.5, 01, 02 AND 04 MG
     Route: 048
     Dates: start: 20031118, end: 20060202
  15. RISPERDAL [Suspect]
     Active Substance: RISPERIDONE
     Indication: AFFECTIVE DISORDER
     Dosage: TWICE DAILY AND UNSPECIFIED FREQUENCY
     Route: 048
     Dates: start: 20081208, end: 20081210
  16. RISPERDAL [Suspect]
     Active Substance: RISPERIDONE
     Indication: AFFECTIVE DISORDER
     Dosage: VARYING DOSES OF 0.5 AND 01 MG IN VARYING FREQUENCIES
     Route: 048
     Dates: start: 20020815
  17. RISPERDAL [Suspect]
     Active Substance: RISPERIDONE
     Indication: AUTISM SPECTRUM DISORDER
     Route: 048
     Dates: start: 20010601
  18. RISPERDAL [Suspect]
     Active Substance: RISPERIDONE
     Indication: CONDUCT DISORDER
     Dosage: VARYING DOSES OF 0.5 AND 01 MG IN VARYING FREQUENCIES
     Route: 048
     Dates: start: 20001208, end: 20001216
  19. RISPERIDONE. [Suspect]
     Active Substance: RISPERIDONE
     Indication: PRODUCT USED FOR UNKNOWN INDICATION
     Route: 048
     Dates: start: 20001208, end: 20001216
  20. RISPERIDONE. [Suspect]
     Active Substance: RISPERIDONE
     Indication: PRODUCT USED FOR UNKNOWN INDICATION
     Route: 048
     Dates: start: 20020815
  21. RISPERDAL [Suspect]
     Active Substance: RISPERIDONE
     Indication: AFFECTIVE DISORDER
     Route: 048
     Dates: start: 20010601
  22. RISPERDAL [Suspect]
     Active Substance: RISPERIDONE
     Indication: AUTISM SPECTRUM DISORDER
     Dosage: VARYING DOSES OF 0.5, 01, 02 AND 04 MG
     Route: 048
     Dates: start: 20031118, end: 20060202
  23. RISPERDAL [Suspect]
     Active Substance: RISPERIDONE
     Indication: POST-TRAUMATIC STRESS DISORDER
     Dosage: VARYING DOSES OF 0.5 AND 01 MG IN VARYING FREQUENCIES
     Route: 048
     Dates: start: 20020815
  24. RISPERDAL [Suspect]
     Active Substance: RISPERIDONE
     Indication: OPPOSITIONAL DEFIANT DISORDER
     Dosage: VARYING DOSES OF 0.5 AND 01 MG IN VARYING FREQUENCIES
     Route: 048
     Dates: start: 20001208, end: 20001216
  25. RISPERIDONE. [Suspect]
     Active Substance: RISPERIDONE
     Indication: PRODUCT USED FOR UNKNOWN INDICATION
     Route: 048
     Dates: start: 20031118, end: 20060202
  26. INVEGA [Suspect]
     Active Substance: PALIPERIDONE
     Indication: PRODUCT USED FOR UNKNOWN INDICATION
     Route: 048
     Dates: start: 20110919
  27. RISPERDAL [Suspect]
     Active Substance: RISPERIDONE
     Indication: AUTISM SPECTRUM DISORDER
     Dosage: VARYING DOSES OF 0.5 AND 01 MG IN VARYING FREQUENCIES
     Route: 048
     Dates: start: 20001208, end: 20001216
  28. RISPERDAL [Suspect]
     Active Substance: RISPERIDONE
     Indication: POST-TRAUMATIC STRESS DISORDER
     Dosage: VARYING DOSES OF 0.5, 01, 02 AND 04 MG
     Route: 048
     Dates: start: 20031118, end: 20060202
  29. RISPERDAL [Suspect]
     Active Substance: RISPERIDONE
     Indication: CONDUCT DISORDER
     Dosage: VARYING DOSES OF 0.5, 01, 02 AND 04 MG
     Route: 048
     Dates: start: 20031118, end: 20060202
  30. RISPERDAL [Suspect]
     Active Substance: RISPERIDONE
     Indication: OPPOSITIONAL DEFIANT DISORDER
     Dosage: TWICE DAILY AND UNSPECIFIED FREQUENCY
     Route: 048
     Dates: start: 20081208, end: 20081210
  31. RISPERDAL [Suspect]
     Active Substance: RISPERIDONE
     Indication: AFFECTIVE DISORDER
     Dosage: VARYING DOSES OF 0.5, 01, 02 AND 04 MG
     Route: 048
     Dates: start: 20031118, end: 20060202
  32. RISPERDAL [Suspect]
     Active Substance: RISPERIDONE
     Indication: AUTISM SPECTRUM DISORDER
     Dosage: VARYING DOSES OF 0.5 AND 01 MG IN VARYING FREQUENCIES
     Route: 048
     Dates: start: 20020815
  33. RISPERDAL [Suspect]
     Active Substance: RISPERIDONE
     Indication: CONDUCT DISORDER
     Dosage: VARYING DOSES OF 0.5 AND 01 MG IN VARYING FREQUENCIES
     Route: 048
     Dates: start: 20020815
  34. RISPERDAL [Suspect]
     Active Substance: RISPERIDONE
     Indication: POST-TRAUMATIC STRESS DISORDER
     Dosage: TWICE DAILY AND UNSPECIFIED FREQUENCY
     Route: 048
     Dates: start: 20081208, end: 20081210
  35. RISPERDAL [Suspect]
     Active Substance: RISPERIDONE
     Indication: ATTENTION DEFICIT/HYPERACTIVITY DISORDER
     Dosage: VARYING DOSES OF 0.5 AND 01 MG IN VARYING FREQUENCIES
     Route: 048
     Dates: start: 20020815
  36. RISPERIDONE. [Suspect]
     Active Substance: RISPERIDONE
     Indication: PRODUCT USED FOR UNKNOWN INDICATION
     Route: 048
     Dates: start: 20081207, end: 20081210

REACTIONS (2)
  - Gynaecomastia [Unknown]
  - Emotional disorder [Unknown]
